FAERS Safety Report 8395946-6 (Version None)
Quarter: 2012Q2

REPORT INFORMATION
  Report Type: 
  Country: None (occurrence: None)
  Receive Date: 20120530
  Receipt Date: 20120525
  Transmission Date: 20120825
  Serious: Yes (Death, Life-Threatening)
  Sender: FDA-Public Use
  Company Number: FR-ROCHE-1072397

PATIENT
  Sex: Female
  Weight: 40 kg

DRUGS (6)
  1. ACTEMRA [Suspect]
     Indication: RHEUMATOID ARTHRITIS
     Dates: start: 20120110
  2. PREDNISONE TAB [Concomitant]
     Dates: start: 20120101
  3. PREDNISONE TAB [Concomitant]
  4. ZOVIRAX [Concomitant]
     Dates: start: 20120222, end: 20120302
  5. CALCIT [Concomitant]
     Dosage: 1200 MG/800 IU
     Dates: start: 20120101
  6. FLUCONAZOLE [Concomitant]
     Dates: start: 20120101

REACTIONS (1)
  - LUNG DISORDER [None]
